FAERS Safety Report 23362208 (Version 2)
Quarter: 2024Q1

REPORT INFORMATION
  Report Type: Other
  Country: JP (occurrence: JP)
  Receive Date: 20240103
  Receipt Date: 20240126
  Transmission Date: 20240410
  Serious: Yes (Other)
  Sender: FDA-Public Use
  Company Number: JP-teijin-202303854_XE_P_1

PATIENT
  Age: 62 Year
  Sex: Male

DRUGS (10)
  1. BOTOX [Suspect]
     Active Substance: ONABOTULINUMTOXINA
     Indication: Facial paralysis
     Route: 030
  2. BOTOX [Suspect]
     Active Substance: ONABOTULINUMTOXINA
     Route: 030
  3. BOTOX [Suspect]
     Active Substance: ONABOTULINUMTOXINA
     Route: 030
  4. BOTOX [Suspect]
     Active Substance: ONABOTULINUMTOXINA
     Route: 030
  5. BOTOX [Suspect]
     Active Substance: ONABOTULINUMTOXINA
     Route: 030
  6. BOTOX [Suspect]
     Active Substance: ONABOTULINUMTOXINA
     Route: 030
  7. BOTOX [Suspect]
     Active Substance: ONABOTULINUMTOXINA
     Route: 030
  8. BOTOX [Suspect]
     Active Substance: ONABOTULINUMTOXINA
     Route: 030
  9. BOTOX [Suspect]
     Active Substance: ONABOTULINUMTOXINA
     Route: 030
  10. BOTOX [Suspect]
     Active Substance: ONABOTULINUMTOXINA
     Route: 030

REACTIONS (3)
  - Cryptococcal cutaneous infection [Recovered/Resolved]
  - Injection site infection [Recovered/Resolved]
  - Off label use [Unknown]
